FAERS Safety Report 5455430-6 (Version None)
Quarter: 2007Q3

REPORT INFORMATION
  Report Type: 
  Country: None (occurrence: None)
  Receive Date: 20070918
  Receipt Date: 20070702
  Transmission Date: 20080115
  Serious: Yes (Other)
  Sender: FDA-Public Use
  Company Number: US-ASTRAZENECA-2006UW21351

PATIENT
  Age: 39 Year
  Sex: Male
  Weight: 93.2 kg

DRUGS (1)
  1. SEROQUEL [Suspect]
     Indication: SCHIZOPHRENIA
     Dosage: 100 MG-1200 MG
     Route: 048
     Dates: start: 20030501, end: 20040501

REACTIONS (3)
  - ABDOMINAL PAIN UPPER [None]
  - HOMICIDAL IDEATION [None]
  - PANCREATITIS [None]
